FAERS Safety Report 16932823 (Version 1)
Quarter: 2019Q4

REPORT INFORMATION
  Report Type: Spontaneous
  Country: US (occurrence: US)
  Receive Date: 20191018
  Receipt Date: 20191018
  Transmission Date: 20200122
  Serious: No
  Sender: FDA-Public Use
  Company Number: US-CELGENEUS-USA-20191003469

PATIENT
  Age: 41 Year
  Sex: Female

DRUGS (2)
  1. OTEZLA [Suspect]
     Active Substance: APREMILAST
     Indication: PRODUCT USED FOR UNKNOWN INDICATION
     Dosage: STARTER PACK
     Route: 048
     Dates: start: 201908
  2. OTEZLA [Suspect]
     Active Substance: APREMILAST
     Dosage: 60 MILLIGRAM (STARTER PACK)
     Route: 048
     Dates: start: 201908, end: 201908

REACTIONS (1)
  - Rash [Unknown]

NARRATIVE: CASE EVENT DATE: 201908
